FAERS Safety Report 24364874 (Version 4)
Quarter: 2024Q4

REPORT INFORMATION
  Report Type: Report from Study
  Country: US (occurrence: US)
  Receive Date: 20240926
  Receipt Date: 20241018
  Transmission Date: 20250114
  Serious: Yes (Death, Hospitalization)
  Sender: ROCHE
  Company Number: US-ROCHE-10000090518

PATIENT
  Age: 73 Year
  Sex: Female

DRUGS (13)
  1. ACTEMRA [Suspect]
     Active Substance: TOCILIZUMAB
     Indication: Rheumatoid arthritis
     Dosage: INFUSE 284 AND 200 MG INTRAVENOUSLY EVERY 4 WEEKS
     Route: 042
  2. ACTEMRA [Suspect]
     Active Substance: TOCILIZUMAB
  3. ACTEMRA ACTPEN [Suspect]
     Active Substance: TOCILIZUMAB
     Indication: Rheumatoid arthritis
     Dosage: 162MG/0.9ML
     Route: 058
  4. LISINOPRIL [Concomitant]
     Active Substance: LISINOPRIL
  5. LORAZEPAM [Concomitant]
     Active Substance: LORAZEPAM
  6. ALBUTEROL [Concomitant]
     Active Substance: ALBUTEROL
  7. HYDROCHLOROTHIAZIDE [Concomitant]
     Active Substance: HYDROCHLOROTHIAZIDE
  8. LEVOTHYROXINE [Concomitant]
     Active Substance: LEVOTHYROXINE
  9. SIMVASTATIN [Concomitant]
     Active Substance: SIMVASTATIN
  10. DESVENLAFAXINE [Concomitant]
     Active Substance: DESVENLAFAXINE
  11. PILOCARPINE [Concomitant]
     Active Substance: PILOCARPINE
  12. METFORMIN [Concomitant]
     Active Substance: METFORMIN HYDROCHLORIDE
  13. SINGULAIR [Concomitant]
     Active Substance: MONTELUKAST SODIUM

REACTIONS (2)
  - Death [Fatal]
  - Pneumonia [Recovered/Resolved]

NARRATIVE: CASE EVENT DATE: 20240101
